FAERS Safety Report 5196608-9 (Version None)
Quarter: 2006Q4

REPORT INFORMATION
  Report Type: 
  Country: None (occurrence: None)
  Receive Date: 20061229
  Receipt Date: 20061229
  Transmission Date: 20070319
  Serious: No
  Sender: FDA-Public Use
  Company Number: None

PATIENT
  Age: 63 Year
  Sex: Male
  Weight: 95.2554 kg

DRUGS (4)
  1. ALBUTEROL [Suspect]
     Indication: ASTHMA
     Dosage: 2 PUFFS  EVERY 4 HOURS
     Dates: start: 20061210, end: 20061212
  2. ALBUTEROL [Suspect]
     Indication: CHRONIC OBSTRUCTIVE PULMONARY DISEASE
     Dosage: 2 PUFFS  EVERY 4 HOURS
     Dates: start: 20061210, end: 20061212
  3. ALBUTEROL [Suspect]
     Indication: ASTHMA
     Dosage: 2 PUFFS  EVERY 4 HOURS
     Dates: start: 20061225, end: 20061225
  4. ALBUTEROL [Suspect]
     Indication: CHRONIC OBSTRUCTIVE PULMONARY DISEASE
     Dosage: 2 PUFFS  EVERY 4 HOURS
     Dates: start: 20061225, end: 20061225

REACTIONS (3)
  - ADVERSE DRUG REACTION [None]
  - DYSPNOEA [None]
  - REACTION TO DRUG EXCIPIENTS [None]
